FAERS Safety Report 5264853-X (Version None)
Quarter: 2007Q1

REPORT INFORMATION
  Report Type: 
  Country: None (occurrence: None)
  Receive Date: 20070314
  Receipt Date: 20070313
  Transmission Date: 20070707
  Serious: Yes (Other)
  Sender: FDA-Public Use
  Company Number: 2007JP000912

PATIENT
  Age: 24 Year
  Sex: Male

DRUGS (3)
  1. CEFAMEZIN [Suspect]
     Route: 065
  2. FOSFOMYCIN [Concomitant]
     Route: 065
  3. GENERAL ANESTHESIA [Concomitant]
     Indication: OSTEOSYNTHESIS
     Route: 065

REACTIONS (3)
  - ANAPHYLACTIC REACTION [None]
  - BLOOD PRESSURE DECREASED [None]
  - FLUSHING [None]
